FAERS Safety Report 25548587 (Version 1)
Quarter: 2025Q3

REPORT INFORMATION
  Report Type: Spontaneous
  Country: CN (occurrence: CN)
  Receive Date: 20250714
  Receipt Date: 20250714
  Transmission Date: 20251020
  Serious: Yes (Hospitalization)
  Sender: NOVARTIS
  Company Number: CN-002147023-NVSC2025CN108492

PATIENT
  Age: 19 Year
  Sex: Male
  Weight: 83 kg

DRUGS (1)
  1. CYCLOSPORINE [Suspect]
     Active Substance: CYCLOSPORINE
     Indication: Symptomatic treatment
     Dosage: 120 MG, BID
     Route: 041
     Dates: start: 20250618, end: 20250618

REACTIONS (12)
  - Anaphylactic shock [Recovering/Resolving]
  - Chest discomfort [Unknown]
  - Hyperhidrosis [Unknown]
  - Rash [Recovering/Resolving]
  - Hypoaesthesia [Unknown]
  - Fall [Unknown]
  - Altered state of consciousness [Unknown]
  - Muscle twitching [Unknown]
  - Anal incontinence [Unknown]
  - Hypotension [Recovered/Resolved]
  - Oxygen saturation decreased [Recovering/Resolving]
  - Blood glucose increased [Unknown]

NARRATIVE: CASE EVENT DATE: 20250618
